FAERS Safety Report 5816756-7 (Version None)
Quarter: 2008Q3

REPORT INFORMATION
  Report Type: 
  Country: None (occurrence: None)
  Receive Date: 20080721
  Receipt Date: 20080715
  Transmission Date: 20090109
  Serious: Yes (Disabling)
  Sender: FDA-Public Use
  Company Number: US-BOEHRINGER INGELHEIM GMBH, GERMANY-2008-BP-09700BP

PATIENT
  Age: 72 Year
  Sex: Male

DRUGS (5)
  1. MIRAPEX [Suspect]
     Indication: RESTLESS LEGS SYNDROME
     Route: 048
     Dates: start: 20080417, end: 20080420
  2. DIGOXIN [Concomitant]
  3. CARBIDOPA AND LEVODOPA [Concomitant]
     Indication: RESTLESS LEGS SYNDROME
  4. COUMADIN [Concomitant]
  5. ARTHRUTEC [Concomitant]

REACTIONS (2)
  - ARTHRALGIA [None]
  - WALKING DISABILITY [None]
